FAERS Safety Report 6354063-7 (Version None)
Quarter: 2009Q3

REPORT INFORMATION
  Report Type: 
  Country: None (occurrence: None)
  Receive Date: 20090914
  Receipt Date: 20090818
  Transmission Date: 20100115
  Serious: No
  Sender: FDA-Public Use
  Company Number: US-JNJFOC-20090806256

PATIENT
  Age: 6 Decade
  Sex: Female

DRUGS (3)
  1. INVEGA [Suspect]
     Route: 048
  2. INVEGA [Suspect]
     Indication: MAJOR DEPRESSION
     Route: 048
  3. DOXEPIN HCL [Concomitant]
     Indication: SLEEP DISORDER THERAPY

REACTIONS (1)
  - VISION BLURRED [None]
